FAERS Safety Report 23408556 (Version 3)
Quarter: 2024Q2

REPORT INFORMATION
  Report Type: Spontaneous
  Country: JP (occurrence: JP)
  Receive Date: 20240117
  Receipt Date: 20240402
  Transmission Date: 20240716
  Serious: Yes (Hospitalization)
  Sender: FDA-Public Use
  Company Number: JP-ABBVIE-5557947

PATIENT
  Sex: Male

DRUGS (2)
  1. CARBIDOPA\LEVODOPA [Suspect]
     Active Substance: CARBIDOPA\LEVODOPA
     Indication: Parkinson^s disease
     Route: 050
     Dates: end: 20231218
  2. CARBIDOPA\LEVODOPA [Suspect]
     Active Substance: CARBIDOPA\LEVODOPA
     Dosage: THERAPY STOP DATE 2024
     Route: 050
     Dates: start: 20240110

REACTIONS (5)
  - Neuroleptic malignant syndrome [Unknown]
  - Pneumonia [Unknown]
  - On and off phenomenon [Unknown]
  - Parkinson^s disease [Unknown]
  - Device issue [Unknown]

NARRATIVE: CASE EVENT DATE: 20231218
